FAERS Safety Report 5961983-1 (Version None)
Quarter: 2008Q4

REPORT INFORMATION
  Report Type: 
  Country: None (occurrence: None)
  Receive Date: 20081121
  Receipt Date: 20081110
  Transmission Date: 20090506
  Serious: Yes (Hospitalization)
  Sender: FDA-Public Use
  Company Number: PHHY2008JP27640

PATIENT
  Age: 77 Year
  Sex: Female

DRUGS (8)
  1. SALAGEN [Suspect]
     Indication: DRY MOUTH
     Dosage: 15 MG (5 MG, 3 IN 1 D)
     Route: 048
     Dates: start: 20080714, end: 20080922
  2. JUVELA [Concomitant]
     Indication: SJOGREN'S SYNDROME
     Dosage: 300 MG DAILY
  3. NORVASC [Concomitant]
     Indication: HYPERTENSION
     Dosage: 5 MG
     Route: 048
  4. DIOVAN [Concomitant]
     Indication: HYPERTENSION
     Dosage: 80 MG
     Route: 048
     Dates: end: 20081009
  5. CYANOCOBALAMIN [Concomitant]
     Indication: SJOGREN'S SYNDROME
     Dosage: 1500 MCG DAILY
  6. MAGNESIUM SULFATE [Concomitant]
     Indication: CONSTIPATION
     Dosage: 1.5 GM
     Route: 048
  7. LENDORMIN [Concomitant]
     Indication: INSOMNIA
     Dosage: 0.25 MG
     Route: 048
  8. ZESTRIL [Concomitant]
     Indication: HYPERTENSION
     Route: 048

REACTIONS (5)
  - ASPIRATION BONE MARROW [None]
  - MEGAKARYOCYTES [None]
  - PETECHIAE [None]
  - PLATELET COUNT DECREASED [None]
  - THROMBOCYTOPENIA [None]
